FAERS Safety Report 10079432 (Version 1)
Quarter: 2014Q2

REPORT INFORMATION
  Report Type: Spontaneous
  Country: US (occurrence: US)
  Receive Date: 20140415
  Receipt Date: 20140415
  Transmission Date: 20141212
  Serious: Yes (Hospitalization, Other)
  Sender: FDA-Public Use
  Company Number: US-BRISTOL-MYERS SQUIBB COMPANY-20606570

PATIENT
  Age: 55 Year
  Sex: Female

DRUGS (18)
  1. BYDUREON [Suspect]
     Indication: TYPE 2 DIABETES MELLITUS
     Route: 058
     Dates: start: 20140227, end: 201403
  2. SYSTANE [Concomitant]
  3. LEVOTHYROXINE [Concomitant]
  4. CARVEDILOL [Concomitant]
  5. OXYBUTYNIN [Concomitant]
  6. ACETAMINOPHEN + HYDROCODONE [Concomitant]
  7. IMIPRAMINE [Concomitant]
  8. ASPIRIN [Concomitant]
  9. COLCRYS [Concomitant]
     Indication: GOUT
  10. FLONASE [Concomitant]
  11. GLYBURIDE + METFORMIN HCL [Concomitant]
  12. HCTZ [Concomitant]
  13. METFORMIN [Concomitant]
  14. VITAMIN B12 [Concomitant]
  15. VITAMIN D2 [Concomitant]
  16. ACTOS [Concomitant]
  17. MULTIVITAMIN [Concomitant]
  18. ZOFRAN [Concomitant]

REACTIONS (2)
  - Pancreatitis acute [Unknown]
  - Bladder mass [Unknown]
